FAERS Safety Report 4431856-4 (Version None)
Quarter: 2004Q3

REPORT INFORMATION
  Report Type: 
  Country: None (occurrence: None)
  Receive Date: 20040819
  Receipt Date: 20040806
  Transmission Date: 20050211
  Serious: Yes (Hospitalization)
  Sender: FDA-Public Use
  Company Number: 198413

PATIENT
  Age: 56 Year
  Sex: Female
  Weight: 72.5755 kg

DRUGS (4)
  1. AVONEX [Suspect]
     Indication: MULTIPLE SCLEROSIS
     Dosage: 30 MCG QW IM
     Route: 030
     Dates: start: 20010101, end: 20031101
  2. AVONEX [Suspect]
     Indication: MULTIPLE SCLEROSIS
     Dosage: 30 MCG QW IM
     Route: 030
     Dates: start: 20031101, end: 20031201
  3. LASIX [Concomitant]
  4. BLOOD PRESSURE MEDICATION [Concomitant]

REACTIONS (6)
  - BLADDER DISTENSION [None]
  - BLADDER NEOPLASM [None]
  - CYSTITIS [None]
  - CYSTOCELE [None]
  - ENTEROCELE [None]
  - RECTOCELE [None]
